FAERS Safety Report 7533276-2 (Version None)
Quarter: 2011Q2

REPORT INFORMATION
  Report Type: 
  Country: None (occurrence: None)
  Receive Date: 20110608
  Receipt Date: 20050916
  Transmission Date: 20111010
  Serious: Yes (Other)
  Sender: FDA-Public Use
  Company Number: PHFR2005GB02146

PATIENT
  Sex: Male

DRUGS (2)
  1. CLOZAPINE [Suspect]
     Indication: SCHIZOPHRENIA
     Dosage: 400 MG, PER DAY
     Route: 048
     Dates: start: 19951010
  2. LANSOPRAZOLE [Concomitant]
     Indication: HIATUS HERNIA
     Dosage: 20 MG PER DAY
     Route: 048

REACTIONS (5)
  - HAEMOGLOBIN DECREASED [None]
  - MEAN CELL HAEMOGLOBIN DECREASED [None]
  - MEAN CELL VOLUME DECREASED [None]
  - HODGKIN'S DISEASE [None]
  - ANAEMIA [None]
